FAERS Safety Report 20327495 (Version 1)
Quarter: 2022Q1

REPORT INFORMATION
  Report Type: Spontaneous
  Country: US (occurrence: US)
  Receive Date: 20220112
  Receipt Date: 20220112
  Transmission Date: 20220423
  Serious: No
  Sender: FDA-Public Use
  Company Number: US-MYLANLABS-2021M1092710

PATIENT
  Age: 65 Year
  Sex: Female
  Weight: 81.65 kg

DRUGS (3)
  1. ESTRADIOL TRANSDERMAL SYSTEM [Suspect]
     Active Substance: ESTRADIOL
     Indication: Product used for unknown indication
     Dosage: 0.075 MILLIGRAM, BIWEEKLY
     Route: 062
     Dates: start: 20211204
  2. MAGNESIUM BISGLYCINATE [Concomitant]
     Dosage: 500 MILLIGRAM, QD
  3. ZINC [Concomitant]
     Active Substance: ZINC
     Dosage: 30 MILLIGRAM, QD
     Route: 048

REACTIONS (2)
  - Product adhesion issue [Unknown]
  - Wrong technique in product usage process [Unknown]

NARRATIVE: CASE EVENT DATE: 20211204
